FAERS Safety Report 11604660 (Version 1)
Quarter: 2015Q4

REPORT INFORMATION
  Report Type: Spontaneous
  Country: US (occurrence: US)
  Receive Date: 20151007
  Receipt Date: 20151007
  Transmission Date: 20160304
  Serious: Yes (Hospitalization)
  Sender: FDA-Public Use
  Company Number: US-BIOGENIDEC-2015BI134299

PATIENT
  Sex: Female

DRUGS (1)
  1. AVONEX [Suspect]
     Active Substance: INTERFERON BETA-1A
     Indication: MULTIPLE SCLEROSIS
     Route: 030
     Dates: start: 20150204

REACTIONS (7)
  - Multiple sclerosis relapse [Not Recovered/Not Resolved]
  - Drug ineffective [Unknown]
  - Migraine [Unknown]
  - Diplopia [Unknown]
  - Influenza like illness [Unknown]
  - Malaise [Recovered/Resolved]
  - Cold sweat [Unknown]
